FAERS Safety Report 17502049 (Version 1)
Quarter: 2020Q1

REPORT INFORMATION
  Report Type: Spontaneous
  Country: US (occurrence: US)
  Receive Date: 20200224
  Receipt Date: 20200224
  Transmission Date: 20200409
  Serious: Yes (Disabling)
  Sender: FDA-Public Use
  Company Number: None

PATIENT
  Age: 79 Year
  Sex: Male
  Weight: 53.52 kg

DRUGS (10)
  1. DIGESTIVE ENZYMES [Concomitant]
     Active Substance: UNSPECIFIED INGREDIENT
  2. ANTACIDS [Concomitant]
     Active Substance: UNSPECIFIED INGREDIENT
  3. LEVOFLOXACIN, GENERIC FOR LEVAQUIN [Suspect]
     Active Substance: LEVOFLOXACIN
     Indication: PNEUMONIA
     Dosage: ?          QUANTITY:1 PILL/DAY;OTHER FREQUENCY:1 TABLET (11) OBLO;?
     Route: 048
     Dates: start: 20160512, end: 20160521
  4. PRAVASTATIN. [Concomitant]
     Active Substance: PRAVASTATIN
  5. VOLTAREN [Concomitant]
     Active Substance: DICLOFENAC SODIUM
  6. ATIVAN [Concomitant]
     Active Substance: LORAZEPAM
  7. NORCO [Concomitant]
     Active Substance: ACETAMINOPHEN\HYDROCODONE BITARTRATE
  8. BENADRYL [Concomitant]
     Active Substance: DIPHENHYDRAMINE HYDROCHLORIDE
  9. ALEVE [Concomitant]
     Active Substance: NAPROXEN SODIUM
  10. MIRALAX [Concomitant]
     Active Substance: POLYETHYLENE GLYCOL 3350

REACTIONS (7)
  - Gait inability [None]
  - Weight decreased [None]
  - Productive cough [None]
  - Neuropathy peripheral [None]
  - Asthenia [None]
  - Hypophagia [None]
  - Intestinal obstruction [None]

NARRATIVE: CASE EVENT DATE: 20160512
